FAERS Safety Report 17071045 (Version 6)
Quarter: 2020Q1

REPORT INFORMATION
  Report Type: Spontaneous
  Country: CH (occurrence: CH)
  Receive Date: 20191125
  Receipt Date: 20200303
  Transmission Date: 20200409
  Serious: Yes (Hospitalization, Disabling, Other)
  Sender: FDA-Public Use
  Company Number: CH-PFIZER INC-2019504428

PATIENT
  Age: 41 Year
  Sex: Female
  Weight: 53 kg

DRUGS (3)
  1. YASMIN [Concomitant]
     Active Substance: DROSPIRENONE\ETHINYL ESTRADIOL
     Indication: CONTRACEPTION
     Dosage: UNK, 1X/DAY
     Dates: end: 20191119
  2. PREDNISONE. [Concomitant]
     Active Substance: PREDNISONE
     Indication: COLITIS ULCERATIVE
     Dosage: 15 MG, DAILY
     Route: 048
     Dates: start: 20190917
  3. XELJANZ [Suspect]
     Active Substance: TOFACITINIB CITRATE
     Indication: ENTEROCOLITIS HAEMORRHAGIC
     Dosage: 10 MG, 2X/DAY
     Route: 048
     Dates: start: 20191113, end: 20191119

REACTIONS (6)
  - Partial seizures [Recovering/Resolving]
  - Cavernous sinus thrombosis [Recovering/Resolving]
  - Nervous system disorder [Recovering/Resolving]
  - Cerebral haemorrhage [Recovering/Resolving]
  - Ischaemic stroke [Recovering/Resolving]
  - Jugular vein thrombosis [Recovering/Resolving]

NARRATIVE: CASE EVENT DATE: 20191119
